FAERS Safety Report 9266527 (Version 3)
Quarter: 2013Q2

REPORT INFORMATION
  Report Type: Spontaneous
  Country: US (occurrence: US)
  Receive Date: 20130502
  Receipt Date: 20130523
  Transmission Date: 20140414
  Serious: Yes (Hospitalization)
  Sender: FDA-Public Use
  Company Number: US-AMGEN-USASP2013029769

PATIENT
  Age: 66 Year
  Sex: Male
  Weight: 81.72 kg

DRUGS (16)
  1. NPLATE [Suspect]
     Indication: PRODUCT USED FOR UNKNOWN INDICATION
     Dosage: 85 MUG, QWK
     Route: 058
     Dates: start: 20101223
  2. CALCIUM CITRATE +D [Concomitant]
     Dosage: 650 MG, QD
     Route: 048
  3. METOPROLOL TARTRATE [Concomitant]
     Dosage: 25 MG, QD
     Route: 048
  4. ZOCOR [Concomitant]
     Dosage: 20 MG, QD IN THE EVENING
     Route: 048
  5. METFORMIN [Concomitant]
     Dosage: 500 MG, QD
  6. FLONASE [Concomitant]
     Dosage: 50 MUG, QD, IN EACH NOSTRIL
     Route: 045
  7. B COMPLEX B12 [Concomitant]
     Dosage: 1 TABLET, QD
     Route: 048
  8. XALATAN [Concomitant]
     Dosage: 1 DROP IN BOTH EYES IN THE EVENING, QD
     Route: 047
  9. CENTRUM SILVER                     /02363801/ [Concomitant]
     Dosage: 1 TABLET, QD
     Route: 048
  10. NITROGLYCERINE [Concomitant]
     Dosage: 1 TABLET, AS NECESSARY
     Route: 060
  11. ASPIRIN [Concomitant]
     Dosage: 81 MG, QD
     Route: 048
  12. PLAVIX [Concomitant]
     Dosage: 75 MG, QD
     Route: 048
  13. PROTONIX [Concomitant]
     Dosage: 40 MG, QD AS NECESSARY
     Route: 048
  14. VITAMIN C                          /00008001/ [Concomitant]
     Dosage: 1 TABLET, QD
     Route: 048
  15. CICLOPIROX [Concomitant]
     Dosage: UNK UNK, AS NECESSARY
     Route: 061
  16. CLOTRIMAZOLE AND BETAMETHASONE [Concomitant]
     Dosage: UNK UNK, AS NECESSARY

REACTIONS (1)
  - Myocardial infarction [Recovered/Resolved]
